FAERS Safety Report 8092161-0 (Version None)
Quarter: 2012Q1

REPORT INFORMATION
  Report Type: 
  Country: None (occurrence: None)
  Receive Date: 20120129
  Receipt Date: 20111115
  Transmission Date: 20120608
  Serious: No
  Sender: FDA-Public Use
  Company Number: US-ABBOTT-11P-163-0874305-00

PATIENT
  Age: 21 Year
  Sex: Female

DRUGS (4)
  1. HUMIRA [Suspect]
     Dates: start: 20110820, end: 20110820
  2. HUMIRA [Suspect]
     Indication: CROHN'S DISEASE
     Dates: start: 20110806, end: 20110806
  3. IMURAN [Suspect]
     Indication: PRODUCT USED FOR UNKNOWN INDICATION
  4. HUMIRA [Suspect]

REACTIONS (2)
  - VOMITING [None]
  - MALAISE [None]
